FAERS Safety Report 4505858-3 (Version None)
Quarter: 2004Q4

REPORT INFORMATION
  Report Type: 
  Country: None (occurrence: None)
  Receive Date: 20041025
  Receipt Date: 20040628
  Transmission Date: 20050328
  Serious: Yes (Other)
  Sender: FDA-Public Use
  Company Number: US-JNJFOC-20040303376

PATIENT
  Age: 75 Year
  Sex: Female
  Weight: 60.3284 kg

DRUGS (15)
  1. REMICADE [Suspect]
     Indication: RHEUMATOID ARTHRITIS
     Dosage: 400 MG, INTRAVENOUS (SEE IMAGE)
     Route: 042
     Dates: start: 20040211, end: 20040211
  2. REMICADE [Suspect]
     Indication: RHEUMATOID ARTHRITIS
     Dosage: 400 MG, INTRAVENOUS (SEE IMAGE)
     Route: 042
     Dates: start: 20031230
  3. THYROID TAB [Concomitant]
  4. INDERAL [Concomitant]
  5. PRIMADONE (EPINEPHRINE) [Concomitant]
  6. CRESTOR (ALL OTHER THERAPEUTIC PRODUCTS) [Concomitant]
  7. PRILOSEC [Concomitant]
  8. ESTRADIOL [Concomitant]
  9. CELEXA [Concomitant]
  10. CALCIUM 600 + D (CALCIUM WITH VITAMIN D) [Concomitant]
  11. VITAMIN E [Concomitant]
  12. VITAMIN B12 [Concomitant]
  13. FOLIC ACID [Concomitant]
  14. MULTIVITAMIN [Concomitant]
  15. PARAFON FORTE (PARAFON FORTE) [Concomitant]

REACTIONS (10)
  - CARDIAC FAILURE CONGESTIVE [None]
  - CHEST PAIN [None]
  - CONDITION AGGRAVATED [None]
  - COUGH [None]
  - FATIGUE [None]
  - MUSCLE TWITCHING [None]
  - POLLAKIURIA [None]
  - PROTEINURIA [None]
  - RENAL PAIN [None]
  - RHEUMATOID ARTHRITIS [None]
